FAERS Safety Report 14936892 (Version 3)
Quarter: 2018Q2

REPORT INFORMATION
  Report Type: Report from Study
  Country: None (occurrence: CO)
  Receive Date: 20180525
  Receipt Date: 20180604
  Transmission Date: 20180711
  Serious: Yes (Other)
  Sender: FDA-Public Use
  Company Number: CO-ABBVIE-18K-036-2365279-00

PATIENT
  Age: 73 Year
  Sex: Male
  Weight: 110 kg

DRUGS (5)
  1. ESOMEPRAZOL [Concomitant]
     Active Substance: ESOMEPRAZOLE
     Indication: PRODUCT USED FOR UNKNOWN INDICATION
  2. LEFLUNOMIDE. [Concomitant]
     Active Substance: LEFLUNOMIDE
     Indication: PRODUCT USED FOR UNKNOWN INDICATION
  3. PREGABALINE [Concomitant]
     Active Substance: PREGABALIN
     Indication: PRODUCT USED FOR UNKNOWN INDICATION
  4. ACETAMINOPHEN W/HYDROCODONE [Concomitant]
     Active Substance: ACETAMINOPHEN\HYDROCODONE
     Indication: PRODUCT USED FOR UNKNOWN INDICATION
     Dosage: 35MG + 25MG
  5. HUMIRA [Suspect]
     Active Substance: ADALIMUMAB
     Indication: RHEUMATOID ARTHRITIS
     Route: 058
     Dates: start: 20130614

REACTIONS (8)
  - Obstruction [Unknown]
  - Nephrolithiasis [Recovering/Resolving]
  - Asthenia [Recovering/Resolving]
  - Benign prostatic hyperplasia [Recovering/Resolving]
  - Epididymal cyst [Recovering/Resolving]
  - Testicular pain [Recovering/Resolving]
  - Drug effect delayed [Unknown]
  - Bladder spasm [Recovering/Resolving]

NARRATIVE: CASE EVENT DATE: 20180401
